FAERS Safety Report 24433440 (Version 1)
Quarter: 2024Q4

REPORT INFORMATION
  Report Type: Spontaneous
  Country: BG (occurrence: BG)
  Receive Date: 20241014
  Receipt Date: 20241014
  Transmission Date: 20250115
  Serious: Yes (Other)
  Sender: ROCHE
  Company Number: BG-ROCHE-10000100327

PATIENT
  Age: 67 Year
  Sex: Male

DRUGS (1)
  1. HEMLIBRA [Suspect]
     Active Substance: EMICIZUMAB-KXWH
     Indication: Haemorrhage prophylaxis
     Dosage: DOSAGE FORM: SOLUTION FOR INJECTION.
     Route: 065

REACTIONS (2)
  - Crohn^s disease [Unknown]
  - Oesophageal carcinoma [Unknown]
